FAERS Safety Report 20406905 (Version 1)
Quarter: 2022Q1

REPORT INFORMATION
  Report Type: Spontaneous
  Country: US (occurrence: None)
  Receive Date: 20220131
  Receipt Date: 20220131
  Transmission Date: 20220423
  Serious: Yes (Other)
  Sender: FDA-Public Use
  Company Number: None

PATIENT
  Age: 58 Year
  Sex: Female
  Weight: 57.15 kg

DRUGS (1)
  1. AIMOVIG [Suspect]
     Active Substance: ERENUMAB-AOOE
     Indication: Migraine prophylaxis
     Dosage: FREQUENCY : DAILY;?
     Route: 058
     Dates: start: 20180418, end: 20200208

REACTIONS (8)
  - Hypertension [None]
  - Irritable bowel syndrome [None]
  - Constipation [None]
  - Urinary tract infection [None]
  - Arthralgia [None]
  - Alopecia [None]
  - Tinnitus [None]
  - Pruritus [None]

NARRATIVE: CASE EVENT DATE: 20180418
